FAERS Safety Report 7105655-9 (Version None)
Quarter: 2010Q4

REPORT INFORMATION
  Report Type: 
  Country: None (occurrence: None)
  Receive Date: 20101110
  Receipt Date: 20101102
  Transmission Date: 20110411
  Serious: Yes (Hospitalization)
  Sender: FDA-Public Use
  Company Number: 020552

PATIENT
  Sex: Female
  Weight: 62 kg

DRUGS (2)
  1. KEPPRA [Suspect]
     Indication: EPILEPSY
     Dosage: (1000 MG BID ORAL)
     Route: 048
  2. LAMOTRIGINE [Concomitant]

REACTIONS (4)
  - DEPRESSION [None]
  - LISTLESS [None]
  - PSYCHOTIC DISORDER [None]
  - SUICIDE ATTEMPT [None]
